FAERS Safety Report 4892692-8 (Version None)
Quarter: 2006Q1

REPORT INFORMATION
  Report Type: 
  Country: None (occurrence: None)
  Receive Date: 20060126
  Receipt Date: 20060118
  Transmission Date: 20060701
  Serious: Yes (Death)
  Sender: FDA-Public Use
  Company Number: GR-BRISTOL-MYERS SQUIBB COMPANY-13251491

PATIENT

DRUGS (7)
  1. CISPLATIN [Suspect]
     Indication: NON-SMALL CELL LUNG CANCER
  2. NAVELBINE [Suspect]
     Indication: NON-SMALL CELL LUNG CANCER
     Route: 042
  3. DIURETIC [Concomitant]
  4. LEUKINE [Concomitant]
     Route: 058
  5. ONDANSETRON [Concomitant]
  6. DEXAMETHASONE TAB [Concomitant]
  7. HYDRATION [Concomitant]

REACTIONS (1)
  - SUDDEN DEATH [None]
